FAERS Safety Report 8204571-9 (Version None)
Quarter: 2012Q1

REPORT INFORMATION
  Report Type: 
  Country: None (occurrence: None)
  Receive Date: 20120313
  Receipt Date: 20120306
  Transmission Date: 20120608
  Serious: Yes (Other)
  Sender: FDA-Public Use
  Company Number: US-PFIZER INC-2012060782

PATIENT
  Sex: Female

DRUGS (1)
  1. REVATIO [Suspect]
     Indication: PULMONARY HYPERTENSION
     Dosage: 20 (NO UNITS PROVIDED) TID
     Dates: start: 20111219, end: 20120101

REACTIONS (2)
  - VISUAL IMPAIRMENT [None]
  - XANTHOPSIA [None]
